FAERS Safety Report 21416502 (Version 5)
Quarter: 2022Q4

REPORT INFORMATION
  Report Type: Spontaneous
  Country: US (occurrence: US)
  Receive Date: 20221006
  Receipt Date: 20221101
  Transmission Date: 20230112
  Serious: No
  Sender: FDA-Public Use
  Company Number: US-SANOFI-01298345

PATIENT
  Age: 47 Year
  Sex: Male

DRUGS (2)
  1. DUPIXENT [Suspect]
     Active Substance: DUPILUMAB
     Indication: Dermatitis atopic
     Dosage: 600 MG, 1X
     Route: 065
     Dates: start: 20200201, end: 20200201
  2. DUPIXENT [Suspect]
     Active Substance: DUPILUMAB
     Dosage: 300 MG QOW
     Route: 065
     Dates: end: 20210501

REACTIONS (7)
  - Periorbital swelling [Unknown]
  - Visual impairment [Unknown]
  - Ocular hyperaemia [Recovered/Resolved]
  - Eye swelling [Unknown]
  - Eye pruritus [Recovered/Resolved]
  - Dermatitis atopic [Unknown]
  - Conjunctivitis [Recovered/Resolved]
